FAERS Safety Report 23460115 (Version 1)
Quarter: 2024Q1

REPORT INFORMATION
  Report Type: Spontaneous
  Country: US (occurrence: US)
  Receive Date: 20240131
  Receipt Date: 20240131
  Transmission Date: 20240410
  Serious: Yes (Death, Other)
  Sender: FDA-Public Use
  Company Number: US-SANDOZ-SDZ2024US009539

PATIENT
  Age: 87 Year
  Sex: Female

DRUGS (2)
  1. ILEVRO [Suspect]
     Active Substance: NEPAFENAC
     Indication: Product used for unknown indication
     Dosage: UNK
     Route: 065
  2. TRAVATAN Z [Suspect]
     Active Substance: TRAVOPROST
     Indication: Product used for unknown indication
     Dosage: UNK
     Route: 065

REACTIONS (1)
  - Death [Fatal]

NARRATIVE: CASE EVENT DATE: 20240124
